FAERS Safety Report 4618122-9 (Version None)
Quarter: 2005Q1

REPORT INFORMATION
  Report Type: 
  Country: None (occurrence: None)
  Receive Date: 20050323
  Receipt Date: 20050318
  Transmission Date: 20050727
  Serious: Yes (Hospitalization)
  Sender: FDA-Public Use
  Company Number: TPG2005A00081

PATIENT
  Age: 84 Year
  Sex: Female

DRUGS (16)
  1. AGOPTON (LANSOPRAZOLE) (30 MILLIGRAM, CAPSULES) [Suspect]
     Dosage: 30 MG, (30 MG, 1 IN 1 D) PER ORAL
     Route: 048
  2. MST CONTINUS (MORPHINE SULFATE) (10 MILLIGRAM, TABLETS) [Suspect]
     Indication: PAIN
     Dosage: 20 MG (10 MG, 2 IN 1 D) PER ORAL
     Route: 048
     Dates: start: 20050109, end: 20050110
  3. VALORON (TILIDINE HYDROCHLORIDE) (DROPS) [Suspect]
     Indication: PAIN
     Dosage: 300 MG (75 MG, 4 IN 1 D) PER ORAL
     Route: 048
     Dates: start: 20050108, end: 20050110
  4. SURMONTIL [Suspect]
     Indication: PAIN
     Dosage: 25 MG (25 MG, 1 IN 1 D) PER ORAL
     Route: 048
     Dates: start: 20050109, end: 20050110
  5. NEURONTIN [Suspect]
     Indication: PAIN
     Dosage: 1800 (600 MG, 3 IN 1 D) PER ORAL
     Route: 048
     Dates: start: 20050108, end: 20050110
  6. BELOC ZOK (METOPROLOL SUCCINATE) (100 MILLIGRAM, TABLETS) [Suspect]
     Indication: MYOCARDIAL ISCHAEMIA
     Dosage: 100 MG (100 MG, 1 IN 1 D) PER ORAL
     Route: 048
  7. MARCOUMAR (PHENPROCOUMON) (3 MILLIGRAM, TABLETS) [Concomitant]
  8. TRIATEC (RAMIPRIL) (5 MILLIGRAM, TABLETS) [Concomitant]
  9. NORVASC (AMLODIPINE BESILATE) (5 MILLIGRAM, TABLETS) [Concomitant]
  10. SELIPRAN (PRAVASTATIN SODIUM) (40 MILLIGRAM, TABLETS) [Concomitant]
  11. CORVATON (MOLSIDOMINE) (4 MILLIGRAM, TABLETS) [Concomitant]
  12. PARACETAMOL (PARACETAMOL) (1 GRAM, TABLETS) [Concomitant]
  13. CALCIUM (CALCIUM /N/A/) [Concomitant]
  14. FOSAMAX (ALENDRONATE SODIUM) (70 MILLIGRAM, TABLETS) [Concomitant]
  15. NITRODERM TTS (GLYCERYL TRINITRATE) (50 MILLIGRAM, POULTICE OR PATCH) [Concomitant]
  16. TOREM (TORASEMIDE (10 MILLIGRAM, TABLETS) [Concomitant]

REACTIONS (6)
  - DRUG INTERACTION [None]
  - HERPES ZOSTER [None]
  - MENINGITIS [None]
  - NEURALGIA [None]
  - OVERDOSE [None]
  - STUPOR [None]
